FAERS Safety Report 7089724-8 (Version None)
Quarter: 2010Q4

REPORT INFORMATION
  Report Type: 
  Country: None (occurrence: None)
  Receive Date: 20101108
  Receipt Date: 20100311
  Transmission Date: 20110411
  Serious: No
  Sender: FDA-Public Use
  Company Number: US-ABBOTT-10P-163-0632328-00

PATIENT
  Sex: Female
  Weight: 78.088 kg

DRUGS (6)
  1. TRICOR [Suspect]
     Indication: BLOOD TRIGLYCERIDES INCREASED
     Dates: start: 20100311, end: 20100311
  2. BISOPROLOL [Concomitant]
     Indication: ARRHYTHMIA
  3. LISINOPRIL [Concomitant]
     Indication: HYPERTENSION
  4. SINGULAIR [Concomitant]
     Indication: HYPERSENSITIVITY
  5. DARVOCET [Concomitant]
     Indication: HEADACHE
  6. ASPIRIN [Concomitant]
     Indication: PRODUCT USED FOR UNKNOWN INDICATION

REACTIONS (4)
  - CHEST DISCOMFORT [None]
  - CONSTIPATION [None]
  - FLATULENCE [None]
  - NAUSEA [None]
